FAERS Safety Report 23695702 (Version 1)
Quarter: 2024Q2

REPORT INFORMATION
  Report Type: Spontaneous
  Country: DE (occurrence: DE)
  Receive Date: 20240402
  Receipt Date: 20240402
  Transmission Date: 20240715
  Serious: Yes (Other)
  Sender: FDA-Public Use
  Company Number: DE-UCBSA-2024013106

PATIENT
  Age: 27 Year
  Sex: Female

DRUGS (2)
  1. LAMOTRIGINE [Suspect]
     Active Substance: LAMOTRIGINE
     Indication: Focal dyscognitive seizures
     Dosage: 400 MILLIGRAM, ONCE A DAY (200 MILLIGRAM, 2X/DAY (BID) (MORNING AND EVENING) 1-0-1-0)
     Route: 065
  2. BRIVIACT [Suspect]
     Active Substance: BRIVARACETAM
     Indication: Focal dyscognitive seizures
     Dosage: 100 MILLIGRAM, ONCE A DAY (50 MILLIGRAM, 2X/DAY (BID) (MORNING AND EVENING) 1-0-1-0)
     Route: 065

REACTIONS (4)
  - Abortion spontaneous [Unknown]
  - Maternal exposure during pregnancy [Unknown]
  - Maternal exposure before pregnancy [Unknown]
  - Off label use [Unknown]

NARRATIVE: CASE EVENT DATE: 20231001
